FAERS Safety Report 8164341 (Version 7)
Quarter: 2013Q2

REPORT INFORMATION
  Report Type: Spontaneous
  Country: US (occurrence: US)
  Receive Date: 20110930
  Receipt Date: 20130524
  Transmission Date: 20140414
  Serious: Yes (Death, Congenital Anomaly, Other)
  Sender: FDA-Public Use
  Company Number: US-PFIZER INC-2011212250

PATIENT
  Sex: Female
  Weight: 1.6 kg

DRUGS (5)
  1. ZOLOFT [Suspect]
     Dosage: UNK
     Route: 064
  2. SERTRALINE HCL [Suspect]
     Dosage: UNK
     Route: 064
  3. PRENATAL VITAMINS [Concomitant]
     Dosage: UNK
     Route: 064
     Dates: start: 20050911
  4. TYLENOL [Concomitant]
     Dosage: UNK
     Route: 064
     Dates: start: 20050911
  5. BETAMETHASONE [Concomitant]
     Dosage: UNK
     Route: 064
     Dates: start: 20060220, end: 20060221

REACTIONS (19)
  - Foetal exposure during pregnancy [Fatal]
  - Gastroschisis [Fatal]
  - Exomphalos [Fatal]
  - Neonatal respiratory distress syndrome [Unknown]
  - Bronchopulmonary dysplasia [Unknown]
  - Intestinal fistula [Unknown]
  - Jaundice [Unknown]
  - Cyanosis [Unknown]
  - Foetal growth restriction [Unknown]
  - Atelectasis [Unknown]
  - Generalised oedema [Unknown]
  - Cardiac murmur [Unknown]
  - Sinus tachycardia [Unknown]
  - Cardiomegaly [Unknown]
  - Breech presentation [Unknown]
  - Pneumonia [Unknown]
  - Respiratory failure [Unknown]
  - Sepsis [Unknown]
  - Premature baby [Unknown]
